FAERS Safety Report 7014689-4 (Version None)
Quarter: 2010Q3

REPORT INFORMATION
  Report Type: 
  Country: None (occurrence: None)
  Receive Date: 20100927
  Receipt Date: 20100830
  Transmission Date: 20110219
  Serious: Yes (Other)
  Sender: FDA-Public Use
  Company Number: IT-ALEXION-A201000879

PATIENT

DRUGS (2)
  1. SOLIRIS [Suspect]
     Indication: COLD TYPE HAEMOLYTIC ANAEMIA
     Dosage: 600 MG, QW
     Route: 042
     Dates: start: 20100517, end: 20100712
  2. SOLIRIS [Suspect]
     Dosage: 900 MG, Q2W
     Route: 042
     Dates: end: 20100719

REACTIONS (2)
  - DRUG INEFFECTIVE [None]
  - LYMPHOMA [None]
